FAERS Safety Report 7139569-5 (Version None)
Quarter: 2010Q4

REPORT INFORMATION
  Report Type: 
  Country: None (occurrence: None)
  Receive Date: 20101206
  Receipt Date: 20101130
  Transmission Date: 20110411
  Serious: Yes (Other)
  Sender: FDA-Public Use
  Company Number: US-ABBOTT-10P-163-0688605-00

PATIENT
  Sex: Female

DRUGS (2)
  1. LUPRON [Suspect]
     Indication: PRODUCT USED FOR UNKNOWN INDICATION
     Dates: start: 20100101
  2. CLIMARA [Concomitant]
     Indication: PRODUCT USED FOR UNKNOWN INDICATION
     Dates: start: 20100101

REACTIONS (9)
  - CRYING [None]
  - FATIGUE [None]
  - FEELING ABNORMAL [None]
  - HYSTERECTOMY [None]
  - NAUSEA [None]
  - PAIN [None]
  - POOR QUALITY SLEEP [None]
  - SALPINGO-OOPHORECTOMY BILATERAL [None]
  - VISUAL IMPAIRMENT [None]
